FAERS Safety Report 17884698 (Version 1)
Quarter: 2020Q2

REPORT INFORMATION
  Report Type: Spontaneous
  Country: US (occurrence: US)
  Receive Date: 20200610
  Receipt Date: 20200610
  Transmission Date: 20200714
  Serious: Yes (Other)
  Sender: FDA-Public Use
  Company Number: None

PATIENT
  Age: 51 Year
  Sex: Female
  Weight: 78.3 kg

DRUGS (1)
  1. ADYPESSUM ADVANCED THERMOGENUC SLIMMING CAPSULES [Suspect]
     Active Substance: DIETARY SUPPLEMENT
     Indication: WEIGHT CONTROL
     Dosage: ?          QUANTITY:2 CAPSULE(S);?
     Route: 048
     Dates: start: 20200527, end: 20200529

REACTIONS (9)
  - Vomiting [None]
  - Abdominal pain [None]
  - Dizziness [None]
  - Nausea [None]
  - Nervousness [None]
  - Myocardial infarction [None]
  - Anal haemorrhage [None]
  - Pain in extremity [None]
  - Musculoskeletal pain [None]

NARRATIVE: CASE EVENT DATE: 20200527
